FAERS Safety Report 6682494-4 (Version None)
Quarter: 2010Q2

REPORT INFORMATION
  Report Type: 
  Country: None (occurrence: None)
  Receive Date: 20100415
  Receipt Date: 20100413
  Transmission Date: 20101027
  Serious: Yes (Hospitalization)
  Sender: FDA-Public Use
  Company Number: FR-SANOFI-AVENTIS-2010SA021385

PATIENT
  Age: 64 Year
  Sex: Male

DRUGS (3)
  1. RIFADIN [Suspect]
     Route: 065
     Dates: start: 20090114
  2. ORBENIN CAP [Suspect]
     Route: 065
     Dates: start: 20090114
  3. GENTAMICIN [Suspect]
     Route: 065
     Dates: start: 20090114, end: 20090118

REACTIONS (5)
  - DERMATITIS EXFOLIATIVE [None]
  - DRUG RASH WITH EOSINOPHILIA AND SYSTEMIC SYMPTOMS [None]
  - EOSINOPHILIA [None]
  - JAUNDICE CHOLESTATIC [None]
  - PANCREATITIS [None]
